FAERS Safety Report 21669311 (Version 2)
Quarter: 2022Q4

REPORT INFORMATION
  Report Type: Spontaneous
  Country: US (occurrence: US)
  Receive Date: 20221201
  Receipt Date: 20221207
  Transmission Date: 20230113
  Serious: Yes (Other)
  Sender: FDA-Public Use
  Company Number: US-PFIZER INC-PV202200111316

PATIENT
  Age: 55 Year
  Sex: Male

DRUGS (1)
  1. CEFTAZIDIME [Suspect]
     Active Substance: CEFTAZIDIME
     Indication: Capnocytophaga infection
     Dosage: UNK
     Route: 033

REACTIONS (2)
  - Delusion [Recovered/Resolved]
  - Mania [Recovered/Resolved]
